FAERS Safety Report 25453960 (Version 1)
Quarter: 2025Q2

REPORT INFORMATION
  Report Type: Spontaneous
  Country: GB (occurrence: GB)
  Receive Date: 20250619
  Receipt Date: 20250619
  Transmission Date: 20250717
  Serious: Yes (Other)
  Sender: TEVA
  Company Number: GB-MHRA-TPP42021785C9998032YC1749470658935

PATIENT
  Age: 39 Year
  Sex: Female
  Weight: 51 kg

DRUGS (11)
  1. DOXYCYCLINE [Suspect]
     Active Substance: DOXYCYCLINE
     Indication: Ill-defined disorder
     Route: 065
     Dates: start: 20250604, end: 20250609
  2. ETHINYL ESTRADIOL\LEVONORGESTREL [Concomitant]
     Active Substance: ETHINYL ESTRADIOL\LEVONORGESTREL
     Indication: Ill-defined disorder
     Dosage: AT THE SAME TIME DAILY FOR 21 DAYS THEN...
     Dates: start: 20250402
  3. TRIMETHOPRIM [Concomitant]
     Active Substance: TRIMETHOPRIM
     Indication: Ill-defined disorder
     Dates: start: 20230622
  4. ALBUTEROL [Concomitant]
     Active Substance: ALBUTEROL
     Indication: Ill-defined disorder
     Dates: start: 20230622
  5. CLARITHROMYCIN [Concomitant]
     Active Substance: CLARITHROMYCIN
     Indication: Ill-defined disorder
     Dosage: FOR 7 DAYS, TO TREA...
     Dates: start: 20250523, end: 20250530
  6. FLUTIFORM [Concomitant]
     Active Substance: FLUTIFORM
     Indication: Ill-defined disorder
     Dosage: PUFFS (PLEASE RETURN YOU...
     Dates: start: 20230622
  7. HYDROCORTISONE [Concomitant]
     Active Substance: HYDROCORTISONE
     Indication: Ill-defined disorder
     Dates: start: 20250604
  8. OMEPRAZOLE [Concomitant]
     Active Substance: OMEPRAZOLE
     Indication: Ill-defined disorder
     Dates: start: 20250609
  9. MOMETASONE [Concomitant]
     Active Substance: MOMETASONE
     Indication: Ill-defined disorder
     Dosage: INTO EACH NOSTRIL
     Route: 045
     Dates: start: 20240819
  10. FEXOFENADINE [Concomitant]
     Active Substance: FEXOFENADINE HYDROCHLORIDE
     Indication: Ill-defined disorder
     Dates: start: 20250604
  11. BECLOMETHASONE DIPROPIONATE\FORMOTEROL FUMARATE [Concomitant]
     Active Substance: BECLOMETHASONE DIPROPIONATE\FORMOTEROL FUMARATE
     Indication: Ill-defined disorder
     Dosage: MAINTENANCE, INHALE ONE PUFF TWICE A DAY. FOR I...
     Dates: start: 20250501, end: 20250531

REACTIONS (1)
  - Gastrooesophageal reflux disease [Recovering/Resolving]
